FAERS Safety Report 19814442 (Version 1)
Quarter: 2021Q3

REPORT INFORMATION
  Report Type: Spontaneous
  Country: US (occurrence: US)
  Receive Date: 20210908
  Receipt Date: 20210908
  Transmission Date: 20211014
  Serious: Yes (Hospitalization)
  Sender: FDA-Public Use
  Company Number: None

PATIENT
  Age: 57 Year
  Sex: Male

DRUGS (1)
  1. TOBRAMYCIN INH SOLN 4ML AMPS 300MG/4ML TEVA PHARMACEUTICAL USA [Suspect]
     Active Substance: TOBRAMYCIN
     Indication: BRONCHIECTASIS
     Dosage: ?          OTHER FREQUENCY:SEE EVENT;OTHER ROUTE:INHALE?
     Dates: start: 20201113

REACTIONS (2)
  - Pneumonia aspiration [None]
  - Rib fracture [None]

NARRATIVE: CASE EVENT DATE: 20210503
